FAERS Safety Report 7518982-8 (Version None)
Quarter: 2011Q2

REPORT INFORMATION
  Report Type: 
  Country: None (occurrence: None)
  Receive Date: 20110602
  Receipt Date: 20110601
  Transmission Date: 20111010
  Serious: Yes (Other)
  Sender: FDA-Public Use
  Company Number: US-TEVA-284166USA

PATIENT
  Sex: Female

DRUGS (14)
  1. ALPRAZOLAM [Concomitant]
  2. METOPROLOL TARTRATE [Concomitant]
  3. TIOTROPIUM BROMIDE [Concomitant]
  4. SIMVASTATIN [Concomitant]
  5. CARVEDILOL [Suspect]
     Dosage: 25 MILLIGRAM;
     Route: 048
  6. LEVOTHYROXINE SODIUM [Concomitant]
  7. LISINOPRIL [Concomitant]
  8. CARVEDILOL [Suspect]
     Indication: HYPERTENSION
     Dates: start: 20110211
  9. METFFORMIN HYDROCHLORIDE [Concomitant]
  10. MONTELUKAST SODIUM [Concomitant]
  11. SERETIDE                           /01420901/ [Suspect]
     Indication: CHRONIC OBSTRUCTIVE PULMONARY DISEASE
     Dosage: 1 PUFF TWICE PER DAY
     Route: 055
  12. PANTOPRAZOLE [Concomitant]
  13. CARVEDILOL [Suspect]
     Indication: HYPERTENSION
     Dosage: 12.5 MILLIGRAM;
     Dates: start: 20110201
  14. FEXOFENADINE HCL [Concomitant]

REACTIONS (10)
  - EYE HAEMORRHAGE [None]
  - HYPOTENSION [None]
  - PAIN [None]
  - BLOOD PRESSURE FLUCTUATION [None]
  - HYPERTENSION [None]
  - SINUSITIS [None]
  - DRUG INEFFECTIVE [None]
  - BLOOD GLUCOSE INCREASED [None]
  - MALAISE [None]
  - RESPIRATORY TRACT IRRITATION [None]
